FAERS Safety Report 5385644-5 (Version None)
Quarter: 2007Q3

REPORT INFORMATION
  Report Type: 
  Country: None (occurrence: None)
  Receive Date: 20070712
  Receipt Date: 20070702
  Transmission Date: 20080115
  Serious: Yes (Other)
  Sender: FDA-Public Use
  Company Number: US-PFIZER INC-2006121063

PATIENT
  Sex: Female
  Weight: 61.7 kg

DRUGS (11)
  1. CELEBREX [Suspect]
     Indication: OSTEOARTHRITIS
     Route: 048
     Dates: start: 20010117, end: 20020706
  2. VIOXX [Suspect]
     Indication: OSTEOARTHRITIS
     Route: 048
     Dates: start: 20020901, end: 20031211
  3. PRILOSEC [Concomitant]
  4. CLONAZEPAM [Concomitant]
  5. TRILEPTAL [Concomitant]
  6. HYDROCODONE BITARTRATE [Concomitant]
  7. ALL OTHER THERAPEUTIC PRODUCTS [Concomitant]
  8. SPIRONOLACTONE [Concomitant]
  9. PLAVIX [Concomitant]
  10. NITROGLYCERIN [Concomitant]
  11. AMITRIPTYLINE HCL [Concomitant]

REACTIONS (3)
  - CARDIOVASCULAR DISORDER [None]
  - INSOMNIA [None]
  - MYOCARDIAL INFARCTION [None]
